FAERS Safety Report 10438295 (Version 1)
Quarter: 2014Q3

REPORT INFORMATION
  Report Type: Not Available
  Country: GB (occurrence: GB)
  Receive Date: 20140908
  Receipt Date: 20140908
  Transmission Date: 20150326
  Serious: Yes (Death)
  Sender: FDA-Public Use
  Company Number: GB-MUNDIPHARMA DS AND PHARMACOVIGILANCE-GBR-2014-0021018

PATIENT
  Age: 37 Year
  Sex: Male
  Weight: 59.1 kg

DRUGS (1)
  1. OXYCODONE HYDROCHLORIDE. [Suspect]
     Active Substance: OXYCODONE HYDROCHLORIDE
     Indication: INTERVERTEBRAL DISC PROTRUSION
     Dosage: 10 MG, BID
     Route: 065
     Dates: start: 201004

REACTIONS (6)
  - Completed suicide [Fatal]
  - Toxicity to various agents [Fatal]
  - Abnormal loss of weight [Not Recovered/Not Resolved]
  - Renal injury [Fatal]
  - Vomiting [Not Recovered/Not Resolved]
  - Liver injury [Fatal]

NARRATIVE: CASE EVENT DATE: 20140124
